FAERS Safety Report 9026371 (Version 3)
Quarter: 2013Q1

REPORT INFORMATION
  Report Type: Spontaneous
  Country: ES (occurrence: None)
  Receive Date: 20121211
  Receipt Date: 20130205
  Transmission Date: 20140127
  Serious: Yes (Hospitalization)
  Sender: FDA-Public Use
  Company Number: 219642

PATIENT
  Age: 34 Year
  Sex: Female
  Weight: 78 kg

DRUGS (3)
  1. INNOHEP (TINZAPARIN SODIUM) [Suspect]
     Indication: THROMBOSIS PROPHYLAXIS
     Dosage: 32500 IU (0.37 IU)?
     Route: 058
  2. ENOXAPARIN (ENOXAPARIN) [Suspect]
     Indication: DEEP VEIN THROMBOSIS
     Dosage: (300 IU/KG, 1 IN 12 HR)?
  3. SODIC HEPARIN (HEPARIN SODIUM) [Suspect]
     Indication: DEEP VEIN THROMBOSIS

REACTIONS (3)
  - Deep vein thrombosis [None]
  - Maternal exposure during pregnancy [None]
  - Overdose [None]
